FAERS Safety Report 8542286-8 (Version None)
Quarter: 2012Q3

REPORT INFORMATION
  Report Type: 
  Country: None (occurrence: None)
  Receive Date: 20120726
  Receipt Date: 20120724
  Transmission Date: 20120928
  Serious: No
  Sender: FDA-Public Use
  Company Number: US-PFIZER INC-2012133948

PATIENT
  Sex: Female
  Weight: 100 kg

DRUGS (3)
  1. SEROQUEL [Concomitant]
     Indication: INSOMNIA
     Dosage: 25 MG, DAILY AT NIGHT
  2. KLONOPIN [Concomitant]
     Indication: INSOMNIA
     Dosage: 1 MG, DAILY AT NIGHT
  3. RELPAX [Suspect]
     Indication: MIGRAINE
     Dosage: 40 MG, DAILY
     Dates: start: 20120524, end: 20120524

REACTIONS (6)
  - MUSCULOSKELETAL PAIN [None]
  - PAIN IN EXTREMITY [None]
  - SENSATION OF HEAVINESS [None]
  - DRUG INEFFECTIVE [None]
  - CHEST DISCOMFORT [None]
  - FEELING ABNORMAL [None]
